FAERS Safety Report 5141378-3 (Version None)
Quarter: 2006Q4

REPORT INFORMATION
  Report Type: 
  Country: None (occurrence: None)
  Receive Date: 20061101
  Receipt Date: 20061012
  Transmission Date: 20070319
  Serious: Yes (Death, Life-Threatening, Hospitalization)
  Sender: FDA-Public Use
  Company Number: US-GLAXOSMITHKLINE-A0623441A

PATIENT
  Age: 52 Year
  Sex: Female
  Weight: 65.8 kg

DRUGS (5)
  1. BLINDED TRIAL MEDICATION [Suspect]
     Dosage: .25MG PER DAY
     Route: 048
     Dates: start: 20060808
  2. ZOFRAN [Suspect]
     Indication: VOMITING
     Dosage: 4MG AS REQUIRED
     Route: 048
     Dates: start: 20060130
  3. CREON [Suspect]
     Dosage: 3CAP THREE TIMES PER DAY
     Route: 048
     Dates: start: 20060403, end: 20060919
  4. NEXIUM [Suspect]
     Dosage: 40MG PER DAY
     Route: 048
     Dates: start: 20060126
  5. PHENERGAN [Concomitant]
     Indication: NAUSEA
     Dosage: 25MG AS REQUIRED
     Route: 048
     Dates: start: 20060208

REACTIONS (6)
  - DEHYDRATION [None]
  - METASTASES TO LIVER [None]
  - NAUSEA [None]
  - SEPSIS [None]
  - URINARY TRACT INFECTION [None]
  - VOMITING [None]
